FAERS Safety Report 14367845 (Version 1)
Quarter: 2018Q1

REPORT INFORMATION
  Report Type: Spontaneous
  Country: US (occurrence: US)
  Receive Date: 20180109
  Receipt Date: 20180109
  Transmission Date: 20180509
  Serious: No
  Sender: FDA-Public Use
  Company Number: US-PERRIGO-17US002555

PATIENT
  Sex: Female

DRUGS (1)
  1. HYDROCORTISONE. [Suspect]
     Active Substance: HYDROCORTISONE
     Indication: ACCIDENTAL EXPOSURE TO PRODUCT
     Dosage: 1 APPLICATION, UNKNOWN
     Route: 054
     Dates: start: 20170219, end: 20170317

REACTIONS (3)
  - Rectal discharge [Unknown]
  - Accidental exposure to product [Recovered/Resolved]
  - Drug dispensing error [Recovered/Resolved]

NARRATIVE: CASE EVENT DATE: 20170219
